FAERS Safety Report 20618670 (Version 1)
Quarter: 2022Q1

REPORT INFORMATION
  Report Type: Spontaneous
  Country: CN (occurrence: CN)
  Receive Date: 20220322
  Receipt Date: 20220322
  Transmission Date: 20220423
  Serious: Yes (Life-Threatening, Hospitalization, Other)
  Sender: FDA-Public Use
  Company Number: CN-STRIDES ARCOLAB LIMITED-2022SP002897

PATIENT
  Age: 53 Year
  Sex: Female

DRUGS (16)
  1. PREDNISOLONE [Suspect]
     Active Substance: PREDNISOLONE
     Indication: Diffuse large B-cell lymphoma
     Dosage: 60 MILLIGRAM, DAY 3-7; ONE CYCLE (CHEMOTHERAPY REGIMEN A)
     Route: 065
  2. PREDNISOLONE [Suspect]
     Active Substance: PREDNISOLONE
     Dosage: 60 MILLIGRAM, DAY 3-7; 5 CYCLES (CHEMOTHERAPY REGIMEN B)
     Route: 065
  3. METHOTREXATE [Suspect]
     Active Substance: METHOTREXATE
     Indication: Diffuse large B-cell lymphoma
     Dosage: 3.5 GRAM PER SQUARE METRE, ON DAY 1; ONE CYCLE(CHEMOTHERAPY REGIMEN A)
     Route: 042
  4. RITUXIMAB [Suspect]
     Active Substance: RITUXIMAB
     Indication: Diffuse large B-cell lymphoma
     Dosage: 375 MILLIGRAM/SQ. METER, ON DAY 0; ONE CYCLE(CHEMOTHERAPY REGIMEN A)
     Route: 065
  5. RITUXIMAB [Suspect]
     Active Substance: RITUXIMAB
     Dosage: 375 MILLIGRAM/SQ. METER, ON DAY 0; 5 CYCLES; CHEMOTHERAPY REGIMEN B
     Route: 065
  6. RITUXIMAB [Suspect]
     Active Substance: RITUXIMAB
     Dosage: UNK, 2 CYCLES
  7. VINCRISTINE [Suspect]
     Active Substance: VINCRISTINE
     Indication: Diffuse large B-cell lymphoma
     Dosage: 2 MILLIGRAM, ON DAY 3; ONE CYCLE (CHEMOTHERAPY REGIMEN A)
     Route: 065
  8. VINCRISTINE [Suspect]
     Active Substance: VINCRISTINE
     Dosage: 2 MILLIGRAM, ON DAY 3; 5 CYCLES (CHEMOTHERAPY REGIMEN B)
     Route: 065
  9. CYCLOPHOSPHAMIDE [Suspect]
     Active Substance: CYCLOPHOSPHAMIDE
     Indication: Diffuse large B-cell lymphoma
     Dosage: 0.75 GRAM PER SQUARE METRE, ONCE PER DAY ON DAY3-4; ONE CYCLE (CHEMOTHERAPY REGIMEN A)
     Route: 065
  10. CYCLOPHOSPHAMIDE [Suspect]
     Active Substance: CYCLOPHOSPHAMIDE
     Dosage: 0.75 GRAM PER SQUARE METRE, ONCE PER DAY ON DAY3-4; 5CYCLES (CHEMOTHERAPY REGIMEN B)
     Route: 065
  11. TEMOZOLOMIDE [Suspect]
     Active Substance: TEMOZOLOMIDE
     Indication: Diffuse large B-cell lymphoma
     Dosage: 150 MILLIGRAM/SQ. METER, ONCE PER DAY, DAYS 3-7; ONE CYCLE (CHEMOTHERAPY REGIMEN A)
     Route: 065
  12. FOTEMUSTINE [Suspect]
     Active Substance: FOTEMUSTINE
     Indication: Diffuse large B-cell lymphoma
     Dosage: 140 MILLIGRAM/SQ. METER, ON DAY 3; 5 CYCLES (CHEMOTHERAPY REGIMEN B)
     Route: 065
  13. TENIPOSIDE [Suspect]
     Active Substance: TENIPOSIDE
     Indication: Diffuse large B-cell lymphoma
     Dosage: 65 MILLIGRAM/SQ. METER, ONCE A DAY, DAY1-3; FIVE CYCLES (CHEMOTHERAPY REGIMEN B)
     Route: 065
  14. IBRUTINIB [Suspect]
     Active Substance: IBRUTINIB
     Indication: Diffuse large B-cell lymphoma
     Dosage: 420 MILLIGRAM, PER DAY, FIVE CYCLES (CHEMOTHERAPY REGIMEN B)
     Route: 065
  15. LEUCOVORIN [Concomitant]
     Active Substance: LEUCOVORIN
     Indication: Drug therapy
     Dosage: UNK
     Route: 065
  16. RANITIDINE HYDROCHLORIDE [Concomitant]
     Active Substance: RANITIDINE HYDROCHLORIDE
     Indication: Supportive care
     Dosage: UNK
     Route: 065

REACTIONS (4)
  - Haematotoxicity [Unknown]
  - Myelosuppression [Recovered/Resolved]
  - Pneumocystis jirovecii pneumonia [Recovered/Resolved]
  - Fatigue [Unknown]
